FAERS Safety Report 16777359 (Version 3)
Quarter: 2020Q3

REPORT INFORMATION
  Report Type: Report from Study
  Country: FR (occurrence: FR)
  Receive Date: 20190905
  Receipt Date: 20191028
  Transmission Date: 20201104
  Serious: Yes (Other)
  Sender: FDA-Public Use
  Company Number: FR-PFIZER INC-2019379733

PATIENT
  Age: 45 Year
  Sex: Female
  Weight: 75 kg

DRUGS (5)
  1. SOLUPRED [METHYLPREDNISOLONE] [Concomitant]
     Indication: INTRACRANIAL PRESSURE INCREASED
     Dosage: 4 DF, DAILY
     Route: 048
     Dates: start: 20190823
  2. ESOMEPRAZOLE MAGNESIUM. [Concomitant]
     Active Substance: ESOMEPRAZOLE MAGNESIUM
     Indication: INTRACRANIAL PRESSURE INCREASED
     Dosage: 1 DF, DAILY
     Route: 048
     Dates: start: 20190823
  3. MEDROL [Concomitant]
     Active Substance: METHYLPREDNISOLONE
     Indication: NEOPLASM
  4. TALAZOPARIB. [Suspect]
     Active Substance: TALAZOPARIB
     Indication: BREAST CANCER METASTATIC
     Dosage: 1 MG, 1X/DAY
     Route: 048
     Dates: start: 20190802
  5. MEDROL [Concomitant]
     Active Substance: METHYLPREDNISOLONE
     Indication: NERVOUS SYSTEM DISORDER
     Dosage: 100 UNK, UNK

REACTIONS (5)
  - Hepatocellular injury [Unknown]
  - Thrombocytopenia [Recovering/Resolving]
  - Neutrophil count decreased [Unknown]
  - Haemoglobin decreased [Unknown]
  - Leukopenia [Recovered/Resolved]

NARRATIVE: CASE EVENT DATE: 20190808
